FAERS Safety Report 17427214 (Version 1)
Quarter: 2020Q1

REPORT INFORMATION
  Report Type: Spontaneous
  Country: FR (occurrence: FR)
  Receive Date: 20200218
  Receipt Date: 20200218
  Transmission Date: 20200409
  Serious: Yes (Death)
  Sender: FDA-Public Use
  Company Number: FR-TEVA-2020-FR-1186955

PATIENT
  Age: 72 Year
  Sex: Male
  Weight: 95 kg

DRUGS (6)
  1. L THYROXIN HENNING 100 MICROGRAMMES, COMPRIM? S?CABLE [Concomitant]
  2. DESLORATADINE. [Concomitant]
     Active Substance: DESLORATADINE
  3. AMIODARONE (CHLORHYDRATE D^) [Suspect]
     Active Substance: AMIODARONE HYDROCHLORIDE
     Indication: ARRHYTHMIA
     Dosage: 400 MG
     Route: 048
  4. ENALAPRIL (MALEATE D^) [Concomitant]
     Active Substance: ENALAPRIL MALEATE
  5. BISOPROLOL (HEMIFUMARATE DE) [Concomitant]
     Active Substance: BISOPROLOL FUMARATE
  6. ZOLPIDEM [Concomitant]
     Active Substance: ZOLPIDEM TARTRATE

REACTIONS (2)
  - Interstitial lung disease [Fatal]
  - Dyspnoea [Fatal]
